FAERS Safety Report 25058852 (Version 5)
Quarter: 2025Q4

REPORT INFORMATION
  Report Type: Report from Study
  Country: JP (occurrence: JP)
  Receive Date: 20250310
  Receipt Date: 20251028
  Transmission Date: 20260117
  Serious: Yes (Hospitalization, Other)
  Sender: ALEXION PHARMACEUTICALS
  Company Number: JP-ASTRAZENECA-202503JPN001949JP

PATIENT
  Age: 16 Year
  Sex: Female

DRUGS (2)
  1. KOSELUGO [Suspect]
     Active Substance: SELUMETINIB
     Indication: Neurofibromatosis
     Dosage: 70 MILLIGRAM, BID
     Dates: start: 20231007, end: 20250430
  2. KOSELUGO [Suspect]
     Active Substance: SELUMETINIB
     Dosage: 45 MILLIGRAM, BID
     Dates: start: 20231204

REACTIONS (5)
  - Crohn^s disease [Unknown]
  - Neurofibromatosis [Not Recovered/Not Resolved]
  - Dermatitis acneiform [Not Recovered/Not Resolved]
  - Alopecia [Unknown]
  - Gastrointestinal disorder [Unknown]

NARRATIVE: CASE EVENT DATE: 20241207
